FAERS Safety Report 15578627 (Version 1)
Quarter: 2018Q4

REPORT INFORMATION
  Report Type: Spontaneous
  Country: US (occurrence: US)
  Receive Date: 20181102
  Receipt Date: 20181102
  Transmission Date: 20190205
  Serious: Yes (Other)
  Sender: FDA-Public Use
  Company Number: US-MYLANLABS-2018M1080011

PATIENT
  Age: 25 Week

DRUGS (3)
  1. MAGNESIUM [Suspect]
     Active Substance: MAGNESIUM
     Dosage: INTRAVENOUS LOADING DOSE
  2. SEVOFLURANE. [Concomitant]
     Active Substance: SEVOFLURANE
     Indication: GENERAL ANAESTHESIA
     Dosage: SEVOFLURANE IN OXYGEN AT MINIMUM ALVEOLAR CONCENTRATION 0.6
     Route: 064
  3. MAGNESIUM [Suspect]
     Active Substance: MAGNESIUM
     Indication: TOCOLYSIS
     Dosage: INTRAVENOUS CONTINUOUS INFUSION
     Route: 064

REACTIONS (3)
  - Foetal exposure during pregnancy [Recovered/Resolved]
  - Condition aggravated [Recovered/Resolved]
  - Bradycardia foetal [Recovered/Resolved]
